FAERS Safety Report 22910187 (Version 3)
Quarter: 2025Q1

REPORT INFORMATION
  Report Type: Report from Study
  Country: US (occurrence: US)
  Receive Date: 20230906
  Receipt Date: 20250222
  Transmission Date: 20250409
  Serious: No
  Sender: SANOFI AVENTIS
  Company Number: US-SA-SAC20230901000699

PATIENT
  Age: 54 Year
  Sex: Male

DRUGS (7)
  1. DUPILUMAB [Suspect]
     Active Substance: DUPILUMAB
     Indication: Dermatitis atopic
     Dosage: 300 MG, QOW
     Route: 058
     Dates: start: 202208
  2. DUPILUMAB [Suspect]
     Active Substance: DUPILUMAB
     Dosage: 300 MG, QOW
     Route: 058
     Dates: start: 20230818
  3. LISINOPRIL [Concomitant]
     Active Substance: LISINOPRIL
  4. HYDROCODONE [Concomitant]
     Active Substance: HYDROCODONE
  5. SIMVASTATIN [Concomitant]
     Active Substance: SIMVASTATIN
  6. METHOCARBAMOL [Concomitant]
     Active Substance: METHOCARBAMOL
  7. FENOFIBRATE [Concomitant]
     Active Substance: FENOFIBRATE

REACTIONS (4)
  - Eye swelling [Recovering/Resolving]
  - Accidental exposure to product [Unknown]
  - Exposure via eye contact [Unknown]
  - Rash [Unknown]

NARRATIVE: CASE EVENT DATE: 20250210
